FAERS Safety Report 4371493-3 (Version None)
Quarter: 2004Q2

REPORT INFORMATION
  Report Type: 
  Country: None (occurrence: None)
  Receive Date: 20040602
  Receipt Date: 20040520
  Transmission Date: 20050107
  Serious: Yes (Other)
  Sender: FDA-Public Use
  Company Number: 2004034128

PATIENT
  Age: 50 Year
  Sex: Female
  Weight: 57.6068 kg

DRUGS (6)
  1. NEURONTIN [Suspect]
     Indication: FIBROMYALGIA
     Dosage: 3600 MG (900 MG, 4 IN 1 D), ORAL
     Route: 048
     Dates: start: 20010101
  2. MODURETIC ^MSD^ (AMILORIDE HYDROCHLORIDE, HYDROCHLOROTHIAZIDE) [Concomitant]
  3. VITAMINS (VITAMINS) [Concomitant]
  4. FLUOXETINE HCL [Concomitant]
  5. ALPRAZOLAM [Concomitant]
  6. FENTANYL [Concomitant]

REACTIONS (7)
  - CONDITION AGGRAVATED [None]
  - COORDINATION ABNORMAL [None]
  - FIBROMYALGIA [None]
  - MUSCLE CRAMP [None]
  - PSYCHOTIC DISORDER [None]
  - RAYNAUD'S PHENOMENON [None]
  - TREATMENT NONCOMPLIANCE [None]
